FAERS Safety Report 10472539 (Version 5)
Quarter: 2015Q1

REPORT INFORMATION
  Report Type: Spontaneous
  Country: US (occurrence: US)
  Receive Date: 20140924
  Receipt Date: 20150327
  Transmission Date: 20150720
  Serious: Yes (Hospitalization)
  Sender: FDA-Public Use
  Company Number: US-PFIZER INC-2014258969

PATIENT
  Age: 84 Year
  Sex: Male
  Weight: 72.56 kg

DRUGS (8)
  1. VIAGRA [Suspect]
     Active Substance: SILDENAFIL CITRATE
     Indication: SEXUAL DYSFUNCTION
     Dosage: 100 MG, UNK
  2. XALATAN [Suspect]
     Active Substance: LATANOPROST
     Dosage: UNK, EVERY NIGHT
  3. XALATAN [Suspect]
     Active Substance: LATANOPROST
     Indication: GLAUCOMA
     Dosage: 2.5 MG ONCE IN THE EVENING
  4. XALATAN [Suspect]
     Active Substance: LATANOPROST
     Dosage: 50 MCG OVER 2.5 MG DROP, 1 TIME IN LEFT EYE, IN EVENING
  5. CELEBREX [Suspect]
     Active Substance: CELECOXIB
     Indication: BONE DISORDER
     Dosage: 200 MG, 1X/DAY
  6. VIAGRA [Suspect]
     Active Substance: SILDENAFIL CITRATE
     Indication: ERECTILE DYSFUNCTION
     Dosage: 100 MG, UNK
  7. CELEBREX [Suspect]
     Active Substance: CELECOXIB
     Indication: MUSCLE DISORDER
  8. VIAGRA [Suspect]
     Active Substance: SILDENAFIL CITRATE
     Dosage: 30 MG, UNK

REACTIONS (4)
  - Drug hypersensitivity [Unknown]
  - Pericardial disease [Unknown]
  - Dyspnoea [Unknown]
  - Dysphonia [Recovering/Resolving]

NARRATIVE: CASE EVENT DATE: 20150312
